FAERS Safety Report 7705515-6 (Version None)
Quarter: 2011Q3

REPORT INFORMATION
  Report Type: 
  Country: None (occurrence: None)
  Receive Date: 20110818
  Receipt Date: 20110808
  Transmission Date: 20111222
  Serious: Yes (Disabling)
  Sender: FDA-Public Use
  Company Number: AUR-APL-2011-04372

PATIENT
  Age: 72 Year
  Sex: Female
  Weight: 63 kg

DRUGS (9)
  1. DOXAZOSIN MESYLATE [Concomitant]
  2. ERYTHROMYCIN [Concomitant]
  3. BISOPROLOL FUMARATE [Suspect]
     Indication: PRODUCT USED FOR UNKNOWN INDICATION
  4. AMLODIPINE [Concomitant]
  5. DIPROBASE (PARAFFIN) [Concomitant]
  6. ACETAMINOPHEN [Concomitant]
  7. RAMIPRIL [Concomitant]
  8. METFORMIN HCL [Concomitant]
  9. SIMVASTATIN [Concomitant]

REACTIONS (1)
  - PAIN IN JAW [None]
